FAERS Safety Report 4417712-6 (Version None)
Quarter: 2004Q3

REPORT INFORMATION
  Report Type: 
  Country: None (occurrence: None)
  Receive Date: 20040803
  Receipt Date: 20040721
  Transmission Date: 20050211
  Serious: Yes (Death)
  Sender: FDA-Public Use
  Company Number: 24726

PATIENT
  Age: 71 Year
  Sex: Male

DRUGS (1)
  1. ALDARA [Suspect]
     Indication: BASAL CELL CARCINOMA
     Dosage: (0.1 SACHET, 1 IN 2 DAY(S), TOPICAL
     Route: 061
     Dates: start: 20040507, end: 20040630

REACTIONS (2)
  - SUDDEN DEATH [None]
  - TREATMENT NONCOMPLIANCE [None]
